FAERS Safety Report 6961395-8 (Version None)
Quarter: 2010Q3

REPORT INFORMATION
  Report Type: 
  Country: None (occurrence: None)
  Receive Date: 20100901
  Receipt Date: 20100823
  Transmission Date: 20110219
  Serious: Yes (Hospitalization)
  Sender: FDA-Public Use
  Company Number: JP-ALLERGAN-1011102US

PATIENT
  Age: 4 Year
  Sex: Male
  Weight: 10 kg

DRUGS (4)
  1. BOTOX INJECTION 100 [Suspect]
     Indication: TORTICOLLIS
     Dosage: 40 UNITS, SINGLE
     Route: 030
     Dates: start: 20090519, end: 20090519
  2. BOTOX INJECTION 100 [Suspect]
     Dosage: 60 UNITS, SINGLE
     Route: 030
     Dates: start: 20091005, end: 20091005
  3. BOTOX INJECTION 100 [Suspect]
     Dosage: 70 UNITS, SINGLE
     Route: 030
     Dates: start: 20100209, end: 20100209
  4. PHENOBARBITAL TAB [Concomitant]
     Indication: EPILEPSY
     Dosage: 12 MG, QD
     Route: 048

REACTIONS (1)
  - PNEUMONIA ASPIRATION [None]
